FAERS Safety Report 4980344-5 (Version None)
Quarter: 2006Q2

REPORT INFORMATION
  Report Type: 
  Country: None (occurrence: None)
  Receive Date: 20060421
  Receipt Date: 20060421
  Transmission Date: 20061013
  Serious: Yes (Hospitalization)
  Sender: FDA-Public Use
  Company Number: None

PATIENT
  Sex: Male

DRUGS (3)
  1. DOCETAXEL [Suspect]
     Indication: NON-SMALL CELL LUNG CANCER
     Dosage: 2.5 MG/M2 WEEKLY X 7 WKS
     Dates: start: 20060322, end: 20060417
  2. IRESSA [Suspect]
     Indication: NON-SMALL CELL LUNG CANCER
     Dosage: 250 MG PO DAILY X 1 YR OR UNTIL PROGRESSION
     Route: 048
     Dates: start: 20060322, end: 20060412
  3. R.T. [Suspect]
     Indication: NON-SMALL CELL LUNG CANCER
     Dosage: TOTAL DOSE 3600
     Dates: start: 20060301, end: 20060417

REACTIONS (4)
  - DRUG TOXICITY [None]
  - HYPOTENSION [None]
  - OESOPHAGITIS [None]
  - SUPRAVENTRICULAR TACHYCARDIA [None]
